FAERS Safety Report 4815784-8 (Version None)
Quarter: 2005Q4

REPORT INFORMATION
  Report Type: 
  Country: None (occurrence: None)
  Receive Date: 20051031
  Receipt Date: 20051011
  Transmission Date: 20060501
  Serious: Yes (Other)
  Sender: FDA-Public Use
  Company Number: JP-JPN-A20052431

PATIENT
  Age: 34 Year
  Sex: Male

DRUGS (4)
  1. MODACIN [Suspect]
     Indication: CELLULITIS
     Dosage: 2G TWICE PER DAY
     Route: 042
     Dates: start: 20051003, end: 20051005
  2. OZEX [Suspect]
     Indication: CELLULITIS
     Dosage: 150MG THREE TIMES PER DAY
     Route: 048
     Dates: start: 20051003, end: 20051006
  3. LORCAM [Suspect]
     Indication: CELLULITIS
     Dosage: 4MG THREE TIMES PER DAY
     Route: 048
     Dates: start: 20051003, end: 20051006
  4. MUCOSTA [Concomitant]
     Dosage: 300MG PER DAY
     Route: 048
     Dates: start: 20051003, end: 20051011

REACTIONS (2)
  - DEAFNESS TRANSITORY [None]
  - TINNITUS [None]
